FAERS Safety Report 9445267 (Version 2)
Quarter: 2013Q3

REPORT INFORMATION
  Report Type: Report from Study
  Country: CA (occurrence: CA)
  Receive Date: 20130807
  Receipt Date: 20130828
  Transmission Date: 20140515
  Serious: Yes (Hospitalization, Other)
  Sender: FDA-Public Use
  Company Number: CA-ABBOTT-13P-028-1127830-00

PATIENT
  Age: 20 Year
  Sex: Male
  Weight: 68.1 kg

DRUGS (2)
  1. HUMIRA [Suspect]
     Indication: CROHN^S DISEASE
     Dosage: TOTAL OF 3 DOSES
     Route: 058
     Dates: start: 20130612, end: 201307
  2. PREDNISONE [Concomitant]
     Indication: CROHN^S DISEASE
     Dosage: UNKNOWN
     Route: 048

REACTIONS (11)
  - Ileal stenosis [Recovered/Resolved]
  - Enteritis [Recovered/Resolved]
  - Serositis [Recovered/Resolved]
  - Crohn^s disease [Recovered/Resolved]
  - Mucosal ulceration [Recovered/Resolved]
  - Intestinal perforation [Recovered/Resolved]
  - Disease progression [Recovered/Resolved]
  - Abscess [Recovered/Resolved]
  - Intestinal polyp [Recovered/Resolved]
  - Diverticulum [Recovered/Resolved]
  - Weight decreased [Recovered/Resolved]
